FAERS Safety Report 15142264 (Version 1)
Quarter: 2018Q3

REPORT INFORMATION
  Report Type: Spontaneous
  Country: US (occurrence: US)
  Receive Date: 20180618
  Receipt Date: 20180618
  Transmission Date: 20181010
  Serious: Yes (Other)
  Sender: FDA-Public Use
  Company Number: None

PATIENT
  Age: 65 Year
  Sex: Male

DRUGS (1)
  1. UNASYN [Suspect]
     Active Substance: AMPICILLIN SODIUM\SULBACTAM SODIUM
     Indication: OSTEOMYELITIS
     Route: 042
     Dates: start: 20180301, end: 20180327

REACTIONS (2)
  - Rash generalised [None]
  - Blood creatine increased [None]

NARRATIVE: CASE EVENT DATE: 20180327
